FAERS Safety Report 8189727-6 (Version None)
Quarter: 2012Q1

REPORT INFORMATION
  Report Type: 
  Country: None (occurrence: None)
  Receive Date: 20120221
  Receipt Date: 20111111
  Transmission Date: 20120608
  Serious: No
  Sender: FDA-Public Use
  Company Number: 1000024162

PATIENT
  Age: 51 Year
  Sex: Male

DRUGS (14)
  1. VIIBRYD [Suspect]
     Indication: DEPRESSION
     Dosage: SEE IMAGE
     Route: 048
     Dates: start: 20110921
  2. VIIBRYD [Suspect]
     Indication: ANXIETY
     Dosage: SEE IMAGE
     Route: 048
     Dates: start: 20110921
  3. VIIBRYD [Suspect]
     Indication: DEPRESSION
     Dosage: SEE IMAGE
     Route: 048
     Dates: start: 20110918, end: 20110918
  4. VIIBRYD [Suspect]
     Indication: ANXIETY
     Dosage: SEE IMAGE
     Route: 048
     Dates: start: 20110918, end: 20110918
  5. VIIBRYD [Suspect]
     Indication: DEPRESSION
     Dosage: SEE IMAGE
     Route: 048
     Dates: start: 20110919, end: 20110920
  6. VIIBRYD [Suspect]
     Indication: ANXIETY
     Dosage: SEE IMAGE
     Route: 048
     Dates: start: 20110919, end: 20110920
  7. VIIBRYD [Suspect]
     Indication: DEPRESSION
     Dosage: SEE IMAGE
     Route: 048
     Dates: start: 20110101, end: 20111108
  8. VIIBRYD [Suspect]
     Indication: ANXIETY
     Dosage: SEE IMAGE
     Route: 048
     Dates: start: 20110101, end: 20111108
  9. VIIBRYD [Suspect]
     Indication: DEPRESSION
     Dosage: SEE IMAGE
     Route: 048
     Dates: start: 20111111
  10. VIIBRYD [Suspect]
     Indication: ANXIETY
     Dosage: SEE IMAGE
     Route: 048
     Dates: start: 20111111
  11. VIIBRYD [Suspect]
     Indication: DEPRESSION
     Dosage: SEE IMAGE
     Route: 048
     Dates: start: 20111109, end: 20111110
  12. VIIBRYD [Suspect]
     Indication: ANXIETY
     Dosage: SEE IMAGE
     Route: 048
     Dates: start: 20111109, end: 20111110
  13. GABAPENTIN [Concomitant]
  14. TRAZODONE (TRAZODONE) (TRAZODONE) [Concomitant]

REACTIONS (7)
  - RESTLESSNESS [None]
  - NAUSEA [None]
  - HALLUCINATION [None]
  - SOMNOLENCE [None]
  - DIARRHOEA [None]
  - DEPRESSION [None]
  - OVERDOSE [None]
